FAERS Safety Report 17585286 (Version 1)
Quarter: 2020Q1

REPORT INFORMATION
  Report Type: Spontaneous
  Country: NL (occurrence: NL)
  Receive Date: 20200326
  Receipt Date: 20200326
  Transmission Date: 20200409
  Serious: Yes (Other)
  Sender: FDA-Public Use
  Company Number: NL-MYLANLABS-2020M1032268

PATIENT
  Sex: Male

DRUGS (4)
  1. TRILEPTAL [Concomitant]
     Active Substance: OXCARBAZEPINE
     Dosage: FILMOMHULDE TABLET, 300 MG (MILLIGRAM)
  2. LEVETIRACETAM. [Concomitant]
     Active Substance: LEVETIRACETAM
     Dosage: FILMOMHULDE TABLET, 500 MG (MILLIGRAM)
  3. PREDNISOLONE. [Suspect]
     Active Substance: PREDNISOLONE
     Indication: GOUT
     Dosage: TABLET, 30 MG (MILLIGRAM), 1 KEER PER DAG, 1
     Dates: start: 20200225, end: 20200226
  4. DEPAKINE                           /00228501/ [Concomitant]
     Active Substance: VALPROIC ACID
     Dosage: TABLET MET GEREGULEERDE AFGIFTE, 500 MG (MILLIGRAM)

REACTIONS (1)
  - Petit mal epilepsy [Recovered/Resolved]
